FAERS Safety Report 22018261 (Version 2)
Quarter: 2023Q1

REPORT INFORMATION
  Report Type: Spontaneous
  Country: JP (occurrence: JP)
  Receive Date: 20230221
  Receipt Date: 20230306
  Transmission Date: 20230417
  Serious: Yes (Hospitalization, Other)
  Sender: FDA-Public Use
  Company Number: JP-PRINSTON PHARMACEUTICAL INC.-2023PRN00064

PATIENT
  Age: 80 Year
  Sex: Female

DRUGS (6)
  1. DONEPEZIL [Suspect]
     Active Substance: DONEPEZIL
     Indication: Dementia Alzheimer^s type
     Dosage: 5 MG, 1X/DAY
  2. DONEPEZIL [Suspect]
     Active Substance: DONEPEZIL
     Dosage: 10 MG
  3. ATORVASTATIN [Concomitant]
     Active Substance: ATORVASTATIN
     Dosage: 10 MG
  4. OLMESARTAN [Concomitant]
     Active Substance: OLMESARTAN
     Dosage: 10 MG
  5. OMEBRAZOLE [Concomitant]
     Dosage: 10 MG
  6. BETAHISTINE MESYL [Concomitant]
     Dosage: 12 MG

REACTIONS (1)
  - Dropped head syndrome [Recovered/Resolved]
